FAERS Safety Report 8187260-9 (Version None)
Quarter: 2012Q1

REPORT INFORMATION
  Report Type: 
  Country: None (occurrence: None)
  Receive Date: 20120306
  Receipt Date: 20120224
  Transmission Date: 20120608
  Serious: Yes (Hospitalization)
  Sender: FDA-Public Use
  Company Number: US-ROCHE-1045360

PATIENT
  Age: 33 Year
  Sex: Female
  Weight: 60.1 kg

DRUGS (7)
  1. AVASTIN [Suspect]
     Indication: BREAST CANCER METASTATIC
     Dates: start: 20120120
  2. OXCARBAZEPINE [Concomitant]
     Route: 048
  3. PHENYTOIN [Concomitant]
     Route: 048
  4. ARIPIPRAZOLE [Concomitant]
     Route: 048
  5. CARBOPLATIN [Suspect]
     Indication: BREAST CANCER METASTATIC
     Dates: start: 20120203
  6. ALBUTEROL [Concomitant]
     Indication: WHEEZING
     Dosage: 2.5 MG NEB Q4H
  7. OXCARBAZEPINE [Concomitant]

REACTIONS (3)
  - HAEMORRHAGE [None]
  - HAEMORRHAGE INTRACRANIAL [None]
  - MENTAL STATUS CHANGES [None]
